FAERS Safety Report 9910242 (Version 2)
Quarter: 2014Q1

REPORT INFORMATION
  Report Type: Spontaneous
  Country: US (occurrence: US)
  Receive Date: 20140219
  Receipt Date: 20140327
  Transmission Date: 20141002
  Serious: Yes (Death, Other)
  Sender: FDA-Public Use
  Company Number: US-JNJFOC-20140209672

PATIENT
  Sex: 0

DRUGS (1)
  1. NUCYNTA IR [Suspect]
     Indication: PRODUCT USED FOR UNKNOWN INDICATION
     Route: 048

REACTIONS (11)
  - Death [Fatal]
  - Withdrawal syndrome [Unknown]
  - Loss of consciousness [Unknown]
  - Respiratory failure [Unknown]
  - Tremor [Unknown]
  - Nightmare [Unknown]
  - Constipation [Unknown]
  - Insomnia [Unknown]
  - Nausea [Unknown]
  - Diarrhoea [Unknown]
  - Anxiety [Unknown]
